FAERS Safety Report 6731315-X (Version None)
Quarter: 2010Q2

REPORT INFORMATION
  Report Type: 
  Country: None (occurrence: None)
  Receive Date: 20100517
  Receipt Date: 20100517
  Transmission Date: 20101027
  Serious: Yes (Life-Threatening)
  Sender: FDA-Public Use
  Company Number: None

PATIENT
  Sex: Female
  Weight: 99.7913 kg

DRUGS (2)
  1. ZIPSOR [Suspect]
     Indication: EPICONDYLITIS
     Dosage: 25MG QID PO
     Route: 048
     Dates: start: 20100513, end: 20100513
  2. ZIPSOR [Suspect]
     Indication: NERVE COMPRESSION
     Dosage: 25MG QID PO
     Route: 048
     Dates: start: 20100513, end: 20100513

REACTIONS (1)
  - ANAPHYLACTIC REACTION [None]
